FAERS Safety Report 19762681 (Version 1)
Quarter: 2021Q3

REPORT INFORMATION
  Report Type: Spontaneous
  Country: US (occurrence: US)
  Receive Date: 20210825
  Receipt Date: 20210825
  Transmission Date: 20211014
  Serious: Yes (Hospitalization)
  Sender: FDA-Public Use
  Company Number: None

PATIENT
  Sex: Male

DRUGS (2)
  1. NEXAVAR [Suspect]
     Active Substance: SORAFENIB
  2. TACROLIMUS (STRIDES) 1MG STRIDES PHARMA [Concomitant]
     Active Substance: TACROLIMUS
     Route: 048
     Dates: start: 201903

REACTIONS (2)
  - Diverticulitis [None]
  - Diarrhoea [None]
